FAERS Safety Report 22158020 (Version 1)
Quarter: 2023Q1

REPORT INFORMATION
  Report Type: Spontaneous
  Country: US (occurrence: US)
  Receive Date: 20230330
  Receipt Date: 20230330
  Transmission Date: 20230418
  Serious: Yes (Death)
  Sender: FDA-Public Use
  Company Number: US-TEVA-2023-US-2870037

PATIENT
  Age: 34 Year
  Sex: Male

DRUGS (11)
  1. OXALIPLATIN [Suspect]
     Active Substance: OXALIPLATIN
     Indication: Plasmablastic lymphoma
     Dosage: 210 MG RECEIVED DURING CYCLE 1
     Route: 065
  2. OXALIPLATIN [Suspect]
     Active Substance: OXALIPLATIN
     Dosage: 275 MG RECEIVED DURING CYCLE 2
     Route: 065
  3. BORTEZOMIB [Suspect]
     Active Substance: BORTEZOMIB
     Indication: Plasmablastic lymphoma
     Dosage: 1.5 MG RECEIVED DURING CYCLE 1
     Route: 065
  4. BORTEZOMIB [Suspect]
     Active Substance: BORTEZOMIB
     Dosage: 2.1 MG RECEIVED DURING CYCLE 1
     Route: 065
  5. BORTEZOMIB [Suspect]
     Active Substance: BORTEZOMIB
     Dosage: 2.8 MG RECEIVED DURING CYCLE 2
     Route: 065
  6. CYTARABINE [Suspect]
     Active Substance: CYTARABINE
     Indication: Plasmablastic lymphoma
     Dosage: 2100 MG RECEIVED ON DAY 1 AND DAY 2 DURING CYCLE 1
     Route: 065
  7. CYTARABINE [Suspect]
     Active Substance: CYTARABINE
     Dosage: 4200 MG RECEIVED ON DAY 1 AND DAY 2 DURING CYCLE 2
     Route: 065
  8. DOXORUBICIN [Concomitant]
     Active Substance: DOXORUBICIN
     Indication: Plasmablastic lymphoma
     Dosage: 10 MG/M2 RECEIVED DURING CYCLE 1-6
     Route: 065
  9. ETOPOSIDE [Concomitant]
     Active Substance: ETOPOSIDE
     Indication: Plasmablastic lymphoma
     Dosage: 50 MG/M2 RECEIVED DURING CYCLE 1-6
     Route: 065
  10. VINCRISTINE [Concomitant]
     Active Substance: VINCRISTINE
     Indication: Plasmablastic lymphoma
     Dosage: 0.4 MG/M2 RECEIVED DURING CYCLE 1-6
     Route: 065
  11. METHOTREXATE [Concomitant]
     Active Substance: METHOTREXATE
     Indication: Plasmablastic lymphoma
     Dosage: 12 MG RECEIVED DURING CYCLE 1-6
     Route: 037

REACTIONS (1)
  - Drug ineffective [Fatal]
